FAERS Safety Report 7829532-0 (Version None)
Quarter: 2011Q4

REPORT INFORMATION
  Report Type: 
  Country: None (occurrence: None)
  Receive Date: 20111020
  Receipt Date: 20111018
  Transmission Date: 20120403
  Serious: Yes (Disabling, Other)
  Sender: FDA-Public Use
  Company Number: US-MERCK-00060940

PATIENT
  Age: 7 Year
  Sex: Male
  Weight: 20 kg

DRUGS (9)
  1. CLARITIN [Concomitant]
     Indication: RHINITIS ALLERGIC
     Route: 048
     Dates: start: 19990910
  2. FORADIL [Concomitant]
     Route: 065
  3. VITAMINS [Concomitant]
     Route: 065
  4. FLOVENT [Suspect]
     Indication: ASTHMA
     Route: 055
     Dates: start: 19990920, end: 20000503
  5. NASACORT AQ [Concomitant]
     Indication: ASTHMA
     Route: 055
     Dates: start: 19990920
  6. NASACORT AQ [Concomitant]
     Indication: RHINITIS ALLERGIC
     Route: 055
     Dates: start: 19990920
  7. SINGULAIR [Suspect]
     Indication: ASTHMA
     Route: 048
     Dates: start: 20000101, end: 20000512
  8. ALBUTEROL [Concomitant]
     Indication: ASTHMA
     Route: 065
  9. VERMOX [Concomitant]
     Indication: INFECTION PARASITIC
     Route: 065
     Dates: start: 20000101

REACTIONS (8)
  - OVERDOSE [None]
  - DYSPEPSIA [None]
  - GASTROINTESTINAL DISORDER [None]
  - EOSINOPHIL COUNT INCREASED [None]
  - HYPERSENSITIVITY [None]
  - OESOPHAGEAL CANDIDIASIS [None]
  - GASTROENTERITIS EOSINOPHILIC [None]
  - EOSINOPHILIC OESOPHAGITIS [None]
